FAERS Safety Report 5806248-3 (Version None)
Quarter: 2008Q3

REPORT INFORMATION
  Report Type: 
  Country: None (occurrence: None)
  Receive Date: 20080709
  Receipt Date: 20080709
  Transmission Date: 20090109
  Serious: Yes (Disabling)
  Sender: FDA-Public Use
  Company Number: None

PATIENT
  Sex: Male

DRUGS (1)
  1. LIDOCAINE 2% W/EPINEPHRINE 1:200000 INJ [Suspect]
     Indication: ARTHROSCOPIC SURGERY
     Dosage: 250 ML  014
     Dates: start: 20040930

REACTIONS (2)
  - BONE DISORDER [None]
  - CHONDROPATHY [None]
